FAERS Safety Report 5388828-5 (Version None)
Quarter: 2007Q3

REPORT INFORMATION
  Report Type: 
  Country: None (occurrence: None)
  Receive Date: 20070712
  Receipt Date: 20070629
  Transmission Date: 20080115
  Serious: Yes (Other)
  Sender: FDA-Public Use
  Company Number: SPI200600184

PATIENT

DRUGS (1)
  1. AMITIZA [Suspect]
     Dosage: 24, SINGLE,
     Dates: start: 20060901, end: 20060901

REACTIONS (1)
  - DRUG EXPOSURE DURING PREGNANCY [None]
